FAERS Safety Report 11509323 (Version 1)
Quarter: 2015Q3

REPORT INFORMATION
  Report Type: Report from Study
  Country: AU (occurrence: AU)
  Receive Date: 20150915
  Receipt Date: 20150915
  Transmission Date: 20151125
  Serious: Yes (Hospitalization)
  Sender: FDA-Public Use
  Company Number: PHHO2015AU013974

PATIENT
  Age: 89 Year
  Sex: Female

DRUGS (7)
  1. RANIBIZUMAB [Suspect]
     Active Substance: RANIBIZUMAB
     Dosage: 0.5 MG, UNK
     Route: 031
     Dates: start: 20150716, end: 20150716
  2. PARACETAMOL [Concomitant]
     Active Substance: ACETAMINOPHEN
     Indication: PAIN
     Dosage: 500 MG, PRN
     Route: 065
     Dates: start: 20150809
  3. REFRESH OPTIVE [Concomitant]
     Active Substance: CARBOXYMETHYLCELLULOSE SODIUM\GLYCERIN
     Indication: DRY EYE
     Dosage: 1 DRP, BID BOTH EYES
     Route: 065
     Dates: start: 20131010
  4. CLOTRIMAZOL [Concomitant]
     Active Substance: CLOTRIMAZOLE
     Indication: NAIL INFECTION
     Dosage: 1 APP, BID BETWEEN TOES
     Route: 061
     Dates: start: 20150626
  5. RANIBIZUMAB [Suspect]
     Active Substance: RANIBIZUMAB
     Indication: NEOVASCULAR AGE-RELATED MACULAR DEGENERATION
     Dosage: 0.5 MG, UNK
     Route: 031
     Dates: start: 20150202
  6. LUMIGAN [Concomitant]
     Active Substance: BIMATOPROST
     Indication: GLAUCOMA
     Dosage: 1 DRP, QD 90%
     Route: 065
     Dates: start: 20070920
  7. METOPROLOL [Suspect]
     Active Substance: METOPROLOL
     Indication: HYPERTENSION
     Dosage: 25 MG, BID
     Route: 065
     Dates: start: 20000815, end: 20150816

REACTIONS (2)
  - Lower respiratory tract infection [Recovered/Resolved]
  - Hypotension [Recovered/Resolved]

NARRATIVE: CASE EVENT DATE: 20150816
